FAERS Safety Report 14304817 (Version 1)
Quarter: 2017Q4

REPORT INFORMATION
  Report Type: Spontaneous
  Country: JP (occurrence: JP)
  Receive Date: 20171219
  Receipt Date: 20171219
  Transmission Date: 20180321
  Serious: Yes (Hospitalization)
  Sender: FDA-Public Use
  Company Number: JP-OTSUKA-000004

PATIENT
  Age: 35 Year
  Sex: Male
  Weight: 39 kg

DRUGS (13)
  1. ABILIFY [Suspect]
     Active Substance: ARIPIPRAZOLE
     Indication: POLYDIPSIA
     Dosage: 24 MG, QD
     Route: 048
     Dates: start: 20071025, end: 20071221
  2. SULPIRIDE [Suspect]
     Active Substance: SULPIRIDE
     Indication: SCHIZOPHRENIA
     Dosage: 50 MG, TID
     Route: 048
     Dates: start: 20070328
  3. RILMAZAFONE HYDROCHLORIDE [Concomitant]
     Active Substance: RILMAZAFONE HYDROCHLORIDE
     Indication: INSOMNIA
     Dosage: 2 MG, QD
     Route: 048
     Dates: start: 20071025, end: 20071214
  4. VITAMEDIN [Concomitant]
     Active Substance: CYANOCOBALAMIN\PYRIDOXINE HYDROCHLORIDE\THIAMINE
     Indication: MALNUTRITION
     Dosage: UNK NO INFORMATION, QD
     Route: 041
     Dates: start: 20071221, end: 20071231
  5. VITAMIN B 1-6-12 [Concomitant]
     Active Substance: CYANOCOBALAMIN\PYRIDOXINE\THIAMINE
     Indication: PRODUCT USED FOR UNKNOWN INDICATION
     Dosage: FORMULATION - TABLET
     Route: 065
     Dates: start: 20071018
  6. TPN [Concomitant]
     Active Substance: AMINO ACIDS\DEXTROSE\ELECTROLYTES NOS\SOYBEAN OIL
     Indication: PRODUCT USED FOR UNKNOWN INDICATION
     Dosage: INFUSION
     Route: 065
     Dates: start: 20071221, end: 20071231
  7. LEXOTAN [Concomitant]
     Active Substance: BROMAZEPAM
     Indication: ANXIETY
     Dosage: 2 MG, TID
     Route: 048
     Dates: start: 20011029
  8. GASMOTIN [Concomitant]
     Active Substance: MOSAPRIDE CITRATE
     Indication: DECREASED APPETITE
     Dosage: 5 MG, TID
     Route: 048
     Dates: start: 20040220
  9. HIBON [Concomitant]
     Active Substance: RIBOFLAVIN
     Indication: ANGULAR CHEILITIS
     Dosage: 20 MG, TID
     Route: 048
     Dates: start: 20071018
  10. CYSTANIN [Concomitant]
     Active Substance: ETHYL CYSTEINATE HYDROCHLORIDE
     Indication: THIRST
     Dosage: 100 MG, TID
     Route: 048
     Dates: start: 19991228
  11. L-CYSTEINE ETHYL ESTER, HCL [Concomitant]
     Indication: PRODUCT USED FOR UNKNOWN INDICATION
     Dosage: FORMULATION - TAB,CYSTANIN
     Route: 065
     Dates: start: 19991228
  12. ISOTONIC SODIUM CHLORIDE SOLUTION [Concomitant]
     Active Substance: SODIUM CHLORIDE
     Indication: HYPONATRAEMIA
     Dosage: 500 ML, QD
     Route: 041
     Dates: start: 20071129, end: 20071231
  13. RHYTHMY [Concomitant]
     Active Substance: RILMAZAFONE HYDROCHLORIDE
     Indication: PRODUCT USED FOR UNKNOWN INDICATION
     Dosage: FORMULATION - TAB
     Route: 065
     Dates: start: 20071025, end: 20071214

REACTIONS (6)
  - Urinary retention [Recovering/Resolving]
  - Liver disorder [Recovered/Resolved]
  - Duodenal ulcer [Recovering/Resolving]
  - Decreased appetite [Unknown]
  - Rhabdomyolysis [Recovered/Resolved]
  - Cachexia [Unknown]

NARRATIVE: CASE EVENT DATE: 20071203
